FAERS Safety Report 24128023 (Version 1)
Quarter: 2024Q3

REPORT INFORMATION
  Report Type: Report from Study
  Country: CA (occurrence: CA)
  Receive Date: 20240723
  Receipt Date: 20240723
  Transmission Date: 20241016
  Serious: Yes (Other)
  Sender: GILEAD
  Company Number: CA-GLAXOSMITHKLINE-CA2024AMR069164

PATIENT
  Age: 35 Year
  Sex: Female

DRUGS (3)
  1. AMBRISENTAN [Suspect]
     Active Substance: AMBRISENTAN
     Indication: Pulmonary arterial hypertension
     Dosage: 5 MG, QD
     Route: 048
     Dates: start: 20240502
  2. AMBRISENTAN [Suspect]
     Active Substance: AMBRISENTAN
     Dosage: 10 MG, QD
     Route: 048
  3. EGG WHITE [Concomitant]
     Active Substance: EGG WHITE
     Indication: Product used for unknown indication
     Dosage: UNK

REACTIONS (3)
  - Hip surgery [Unknown]
  - Peripheral swelling [Unknown]
  - Malaise [Unknown]
